FAERS Safety Report 11591373 (Version 1)
Quarter: 2015Q4

REPORT INFORMATION
  Report Type: Spontaneous
  Country: GB (occurrence: GB)
  Receive Date: 20151005
  Receipt Date: 20151005
  Transmission Date: 20160304
  Serious: Yes (Disabling, Other)
  Sender: FDA-Public Use
  Company Number: GB-MACLEODS PHARMACEUTICALS US LTD-MAC2015002031

PATIENT

DRUGS (2)
  1. CLOPIDOGREL [Suspect]
     Active Substance: CLOPIDOGREL BISULFATE
     Indication: ANTIPLATELET THERAPY
     Route: 065
  2. ACETYLSALICYLIC ACID [Suspect]
     Active Substance: ASPIRIN
     Indication: ANTIPLATELET THERAPY
     Route: 065

REACTIONS (5)
  - Spinal cord compression [Not Recovered/Not Resolved]
  - Extradural haematoma [Not Recovered/Not Resolved]
  - Sensory loss [Not Recovered/Not Resolved]
  - Immobile [Not Recovered/Not Resolved]
  - Muscular weakness [Not Recovered/Not Resolved]
